FAERS Safety Report 10049793 (Version 2)
Quarter: 2014Q2

REPORT INFORMATION
  Report Type: Spontaneous
  Country: US (occurrence: US)
  Receive Date: 20140401
  Receipt Date: 20140513
  Transmission Date: 20141212
  Serious: Yes (Other)
  Sender: FDA-Public Use
  Company Number: US-OTSUKA-US-2014-10617

PATIENT
  Age: 35 Year
  Sex: Female

DRUGS (5)
  1. SAMSCA [Suspect]
     Indication: HYPONATRAEMIA
     Dosage: 15 MG MILLIGRAM(S), QD
     Route: 065
     Dates: start: 20140325
  2. SAMSCA [Suspect]
     Dosage: 30 MG MILLIGRAM(S), QD
     Route: 065
     Dates: start: 20140326
  3. SAMSCA [Suspect]
     Dosage: 30 MG MILLIGRAM(S), QD
     Route: 065
     Dates: start: 20140327
  4. LASIX [Concomitant]
     Indication: PRODUCT USED FOR UNKNOWN INDICATION
     Dosage: UNK
     Dates: end: 20140323
  5. ZAROXOLYN [Concomitant]
     Indication: PRODUCT USED FOR UNKNOWN INDICATION
     Dosage: UNK
     Dates: end: 20140323

REACTIONS (2)
  - Blood sodium decreased [Not Recovered/Not Resolved]
  - Bronchitis [Unknown]
